FAERS Safety Report 10586653 (Version 2)
Quarter: 2015Q1

REPORT INFORMATION
  Report Type: Spontaneous
  Country: US (occurrence: US)
  Receive Date: 20141117
  Receipt Date: 20150106
  Transmission Date: 20150720
  Serious: No
  Sender: FDA-Public Use
  Company Number: US-BIOGENIDEC-2014BI117868

PATIENT
  Age: 52 Year
  Sex: Female

DRUGS (9)
  1. TOPAMAX [Concomitant]
     Active Substance: TOPIRAMATE
  2. BACLOFEN. [Concomitant]
     Active Substance: BACLOFEN
  3. TECFIDERA [Suspect]
     Active Substance: DIMETHYL FUMARATE
     Indication: MULTIPLE SCLEROSIS
     Route: 048
     Dates: start: 20130910, end: 20141029
  4. TOPROL XL [Concomitant]
     Active Substance: METOPROLOL SUCCINATE
  5. WELLBUTRIN XL [Concomitant]
     Active Substance: BUPROPION HYDROCHLORIDE
  6. ZOCOR [Concomitant]
     Active Substance: SIMVASTATIN
  7. DITROPAN XL [Concomitant]
     Active Substance: OXYBUTYNIN CHLORIDE
  8. GABAPENTIN. [Concomitant]
     Active Substance: GABAPENTIN
  9. ACCUPRIL [Concomitant]
     Active Substance: QUINAPRIL HYDROCHLORIDE

REACTIONS (4)
  - Platelet count decreased [Recovered/Resolved]
  - Weight decreased [Recovered/Resolved]
  - Hypotension [Recovered/Resolved]
  - White blood cell count decreased [Recovered/Resolved]

NARRATIVE: CASE EVENT DATE: 20141001
